FAERS Safety Report 24418099 (Version 4)
Quarter: 2025Q1

REPORT INFORMATION
  Report Type: Report from Study
  Country: US (occurrence: US)
  Receive Date: 20241009
  Receipt Date: 20250121
  Transmission Date: 20250409
  Serious: Yes (Other)
  Sender: SUNOVION
  Company Number: US-SUMITOMO PHARMA SWITZERLAND GMBH-2024SPA003811

PATIENT

DRUGS (3)
  1. ORGOVYX [Suspect]
     Active Substance: RELUGOLIX
     Indication: Prostate cancer
     Dosage: 360 MG, SINGLE
     Route: 048
     Dates: start: 20240927, end: 20240927
  2. ORGOVYX [Suspect]
     Active Substance: RELUGOLIX
     Dosage: 120 MG, QD
     Route: 048
     Dates: start: 20240928
  3. ORGOVYX [Suspect]
     Active Substance: RELUGOLIX
     Route: 048

REACTIONS (19)
  - Colitis [Unknown]
  - Haematochezia [Unknown]
  - Irritable bowel syndrome [Unknown]
  - Feeling abnormal [Unknown]
  - Gastrointestinal inflammation [Unknown]
  - Bowel movement irregularity [Unknown]
  - Thirst [Unknown]
  - Muscle atrophy [Unknown]
  - Influenza like illness [Unknown]
  - Vomiting [Unknown]
  - Nausea [Unknown]
  - Abdominal pain upper [Unknown]
  - Gastrointestinal pain [Unknown]
  - Headache [Unknown]
  - Diarrhoea [Unknown]
  - Arthralgia [Unknown]
  - Dizziness [Unknown]
  - Insomnia [Unknown]
  - Hot flush [Unknown]
